FAERS Safety Report 4565009-6 (Version None)
Quarter: 2005Q1

REPORT INFORMATION
  Report Type: 
  Country: None (occurrence: None)
  Receive Date: 20050126
  Receipt Date: 20050107
  Transmission Date: 20050727
  Serious: Yes (Hospitalization)
  Sender: FDA-Public Use
  Company Number: 2005013112

PATIENT

DRUGS (2)
  1. HALCION [Suspect]
     Indication: ILL-DEFINED DISORDER
     Dosage: ORAL
     Route: 048
  2. VEGETAMIN (CHLORPROMAZINE HYDROCHLORIDE, PHENOBARBITAL, PROMETHAZINE H [Concomitant]

REACTIONS (4)
  - LOSS OF CONSCIOUSNESS [None]
  - MULTIPLE DRUG OVERDOSE [None]
  - PANCREATITIS [None]
  - SUICIDE ATTEMPT [None]
